FAERS Safety Report 10798910 (Version 1)
Quarter: 2015Q1

REPORT INFORMATION
  Report Type: Spontaneous
  Country: US (occurrence: US)
  Receive Date: 20150216
  Receipt Date: 20150216
  Transmission Date: 20150721
  Serious: Yes (Other)
  Sender: FDA-Public Use
  Company Number: US-PERRIGO-15US001897

PATIENT
  Sex: Male
  Weight: 83.9 kg

DRUGS (5)
  1. LIPID MODIFYING AGENTS [Concomitant]
     Indication: PROPHYLAXIS
     Dosage: UNK
     Route: 048
     Dates: start: 2004
  2. ACETAMINOPHEN. [Concomitant]
     Active Substance: ACETAMINOPHEN
     Indication: HEADACHE
     Dosage: 500-1000 MG, QD-TID, PRN
     Route: 048
     Dates: start: 2004, end: 201410
  3. ACETAMINOPHEN. [Concomitant]
     Active Substance: ACETAMINOPHEN
     Indication: PAIN
  4. ASPIRIN 325MG COATED 416 [Suspect]
     Active Substance: ASPIRIN
     Indication: PRODUCT USED FOR UNKNOWN INDICATION
     Dosage: UNKNOWN, UNKNOWN
     Route: 048
     Dates: start: 2014, end: 201410
  5. ANTITHROMBOTIC AGENTS [Concomitant]
     Active Substance: UNSPECIFIED INGREDIENT
     Indication: CARDIAC ASSISTANCE DEVICE USER
     Dosage: UNK
     Route: 048
     Dates: start: 2004

REACTIONS (12)
  - Lip swelling [Unknown]
  - Swelling face [Unknown]
  - Ocular hyperaemia [Unknown]
  - Nasal congestion [Unknown]
  - Swollen tongue [Unknown]
  - Dyspnoea [Unknown]
  - Drug hypersensitivity [Unknown]
  - Anaphylactic reaction [Unknown]
  - Pruritus [Unknown]
  - Rhinorrhoea [Unknown]
  - Urticaria [Unknown]
  - Cough [Unknown]

NARRATIVE: CASE EVENT DATE: 2014
